FAERS Safety Report 15505590 (Version 1)
Quarter: 2018Q4

REPORT INFORMATION
  Report Type: Spontaneous
  Country: CH (occurrence: CH)
  Receive Date: 20181016
  Receipt Date: 20181016
  Transmission Date: 20190205
  Serious: Yes (Other)
  Sender: FDA-Public Use
  Company Number: CH-TEVA-2018-CH-963582

PATIENT
  Age: 66 Year
  Sex: Female

DRUGS (5)
  1. SOFOSBUVIR [Interacting]
     Active Substance: SOFOSBUVIR
     Indication: HEPATITIS C
     Dosage: 400 MG EVERY OTHER DAY FOR 24 WEEKS
     Route: 065
  2. LAMIVUDINE. [Suspect]
     Active Substance: LAMIVUDINE
     Indication: HEPATITIS B
     Route: 065
  3. CICLOSPORIN [Suspect]
     Active Substance: CYCLOSPORINE
     Indication: IMMUNOSUPPRESSANT DRUG THERAPY
     Route: 065
  4. DACLATASVIR. [Interacting]
     Active Substance: DACLATASVIR
     Indication: HEPATITIS C
     Dosage: FOR 24 WEEKS
     Route: 065
  5. ADEFOVIR [Concomitant]
     Active Substance: ADEFOVIR
     Indication: HEPATITIS B

REACTIONS (4)
  - Drug level increased [Unknown]
  - Drug interaction [Unknown]
  - Drug resistance [Unknown]
  - Creatinine renal clearance decreased [Unknown]
